FAERS Safety Report 5142070-1 (Version None)
Quarter: 2006Q4

REPORT INFORMATION
  Report Type: 
  Country: None (occurrence: None)
  Receive Date: 20061030
  Receipt Date: 20061030
  Transmission Date: 20070319
  Serious: Yes (Death)
  Sender: FDA-Public Use
  Company Number: None

PATIENT
  Age: 82 Year
  Sex: Male
  Weight: 79.8331 kg

DRUGS (5)
  1. TAXOL [Suspect]
     Dates: start: 20060719
  2. CUMADIN [Concomitant]
  3. HEART PILL [Concomitant]
  4. WATER PILL [Concomitant]
  5. HIGH BLOOD PRESSURE PILL [Concomitant]

REACTIONS (2)
  - CEREBROVASCULAR ACCIDENT [None]
  - POST PROCEDURAL HAEMORRHAGE [None]
